FAERS Safety Report 9748833 (Version 1)
Quarter: 2013Q4

REPORT INFORMATION
  Report Type: Spontaneous
  Country: BE (occurrence: None)
  Receive Date: 20131209
  Receipt Date: 20131209
  Transmission Date: 20140711
  Serious: Yes (Other)
  Sender: FDA-Public Use
  Company Number: SYM-2013-13724

PATIENT
  Sex: Female

DRUGS (3)
  1. 5-FU (FLUOROURACIL) [Suspect]
     Indication: BREAST CANCER
  2. EPIRUBICIN (EPIRUBICIN) (EPIRUBICIN) [Suspect]
     Indication: BREAST CANCER
  3. CYCLOPHOSPHAMIDE (CYCLOPHOSPHAMIDE) (CYCLOPHOSPHAMIDE) [Suspect]
     Indication: BREAST CANCER

REACTIONS (2)
  - Anaemia [None]
  - Pyrexia [None]
